FAERS Safety Report 13484467 (Version 9)
Quarter: 2017Q3

REPORT INFORMATION
  Report Type: Report from Study
  Country: BR (occurrence: BR)
  Receive Date: 20170425
  Receipt Date: 20170925
  Transmission Date: 20171127
  Serious: Yes (Congenital Anomaly, Other)
  Sender: FDA-Public Use
  Company Number: BR-BRISTOL-MYERS SQUIBB COMPANY-BMS-2017-033775

PATIENT
  Sex: Male

DRUGS (6)
  1. LAMIVUDINE,ZIDOVUDINE [Suspect]
     Active Substance: LAMIVUDINE\ZIDOVUDINE
     Indication: PROPHYLAXIS AGAINST HIV INFECTION
     Dosage: 450 MG, Q12H
     Route: 064
     Dates: start: 20161118, end: 20170325
  2. ACYCLOVIR                          /00587301/ [Concomitant]
     Active Substance: ACYCLOVIR
     Indication: PRODUCT USED FOR UNKNOWN INDICATION
     Dosage: UNK UNK, TID
     Route: 064
     Dates: start: 20170125, end: 20170130
  3. NITROFURANTOIN. [Concomitant]
     Active Substance: NITROFURANTOIN
     Indication: PRODUCT USED FOR UNKNOWN INDICATION
     Dosage: UNK UNK, Q6H
     Route: 064
     Dates: start: 20170209, end: 20170216
  4. BENZATHINE PENICILLIN [Concomitant]
     Active Substance: PENICILLIN G BENZATHINE
     Indication: PRODUCT USED FOR UNKNOWN INDICATION
     Dosage: UNK, QWK
     Route: 064
     Dates: end: 20161128
  5. EFAVIRENZ [Suspect]
     Active Substance: EFAVIRENZ
     Indication: PROPHYLAXIS AGAINST HIV INFECTION
     Dosage: 600 MG, QD
     Route: 064
     Dates: start: 20161118, end: 20170325
  6. METRONIDAZOLE W/NYSTATIN [Concomitant]
     Indication: PRODUCT USED FOR UNKNOWN INDICATION
     Dosage: UNK, QD
     Route: 064
     Dates: end: 20161201

REACTIONS (2)
  - Foetal exposure during pregnancy [Unknown]
  - Congenital tricuspid valve incompetence [Not Recovered/Not Resolved]

NARRATIVE: CASE EVENT DATE: 20161215
